FAERS Safety Report 4877589-1 (Version None)
Quarter: 2006Q1

REPORT INFORMATION
  Report Type: 
  Country: None (occurrence: None)
  Receive Date: 20060111
  Receipt Date: 20051128
  Transmission Date: 20060701
  Serious: Yes (Hospitalization, Disabling)
  Sender: FDA-Public Use
  Company Number: DE-GLAXOSMITHKLINE-D0048131A

PATIENT
  Age: 13 Year
  Sex: Male
  Weight: 39.3 kg

DRUGS (7)
  1. ESKAZOLE [Suspect]
     Dosage: 200MG THREE TIMES PER DAY
     Route: 048
     Dates: start: 20050916, end: 20050924
  2. AZITHROMYCIN [Suspect]
     Route: 048
     Dates: start: 20050914, end: 20050926
  3. ATENOLOL [Concomitant]
     Dosage: 25MG PER DAY
     Route: 048
  4. PANTOZOL [Concomitant]
     Indication: GASTRITIS
     Dosage: 20MG TWICE PER DAY
     Route: 048
  5. CELLCEPT [Concomitant]
     Indication: LIVER TRANSPLANT
     Dosage: 750MG PER DAY
     Route: 065
  6. PROGRAF [Concomitant]
     Indication: LIVER TRANSPLANT
     Dosage: 2MG TWICE PER DAY
     Route: 065
  7. MEBENDAZOLE [Concomitant]
     Route: 065
     Dates: start: 20050915, end: 20050916

REACTIONS (4)
  - ALANINE AMINOTRANSFERASE INCREASED [None]
  - CHOLESTASIS [None]
  - HEPATITIS TOXIC [None]
  - PRURITUS [None]
